FAERS Safety Report 4610343-4 (Version None)
Quarter: 2005Q1

REPORT INFORMATION
  Report Type: 
  Country: None (occurrence: None)
  Receive Date: 20050316
  Receipt Date: 20050307
  Transmission Date: 20050727
  Serious: Yes (Hospitalization)
  Sender: FDA-Public Use
  Company Number: US-ABBOTT-05P-163-0293040-00

PATIENT
  Sex: Male
  Weight: 89.892 kg

DRUGS (4)
  1. BIAXIN XL [Suspect]
     Indication: SINUSITIS
     Route: 048
     Dates: start: 20050224, end: 20050226
  2. ZOCOR [Concomitant]
     Indication: BLOOD CHOLESTEROL INCREASED
     Route: 048
     Dates: start: 20040101, end: 20050101
  3. ZOCOR [Concomitant]
     Route: 048
     Dates: start: 20050301
  4. OXYMETAZOLINE HYDROCHLORIDE [Concomitant]
     Indication: DRUG USE FOR UNKNOWN INDICATION
     Route: 045

REACTIONS (8)
  - AGITATION [None]
  - CONFUSIONAL STATE [None]
  - CRYING [None]
  - FATIGUE [None]
  - MANIA [None]
  - PSYCHOMOTOR SKILLS IMPAIRED [None]
  - SCREAMING [None]
  - SPEECH DISORDER [None]
